FAERS Safety Report 20026648 (Version 1)
Quarter: 2021Q4

REPORT INFORMATION
  Report Type: Spontaneous
  Country: US (occurrence: US)
  Receive Date: 20211102
  Receipt Date: 20211102
  Transmission Date: 20220303
  Serious: No
  Sender: FDA-Public Use
  Company Number: US-SEATTLE GENETICS-2020SGN03475

PATIENT
  Sex: Female

DRUGS (13)
  1. TUKYSA [Suspect]
     Active Substance: TUCATINIB
     Indication: Breast cancer female
     Dosage: UNK
     Dates: start: 20200728
  2. TUKYSA [Suspect]
     Active Substance: TUCATINIB
     Dosage: UNK
  3. TUKYSA [Suspect]
     Active Substance: TUCATINIB
     Dosage: UNK
  4. TUKYSA [Suspect]
     Active Substance: TUCATINIB
     Dosage: 2 DF, BID
  5. TUKYSA [Suspect]
     Active Substance: TUCATINIB
     Dosage: 2 DF BID
  6. TUKYSA [Suspect]
     Active Substance: TUCATINIB
     Dosage: 2 DF, BID
  7. TUKYSA [Suspect]
     Active Substance: TUCATINIB
     Dosage: 150 MG, BID
     Dates: start: 20200914
  8. TUKYSA [Suspect]
     Active Substance: TUCATINIB
     Dosage: 150 MG, BID
  9. TUKYSA [Suspect]
     Active Substance: TUCATINIB
     Dosage: 150 MG, BID
  10. TUKYSA [Suspect]
     Active Substance: TUCATINIB
     Dosage: UNK
  11. XELODA [Suspect]
     Active Substance: CAPECITABINE
     Indication: Breast cancer female
     Dosage: UNK
  12. XELODA [Suspect]
     Active Substance: CAPECITABINE
     Dosage: 1500 MG IN AM, 1000 MG IN PM X14 DAYS, 7 OFF
     Dates: start: 20200919
  13. ENHERTU [Concomitant]
     Active Substance: FAM-TRASTUZUMAB DERUXTECAN-NXKI
     Indication: Breast cancer female
     Dosage: Q3WEEKS

REACTIONS (16)
  - Pulmonary mass [Unknown]
  - Onychoclasis [Unknown]
  - Dyspepsia [Unknown]
  - Asthenia [Unknown]
  - Feeling abnormal [Unknown]
  - Flatulence [Unknown]
  - Fatigue [Unknown]
  - Dehydration [Unknown]
  - Abdominal pain [Unknown]
  - Decreased appetite [Unknown]
  - Weight decreased [Unknown]
  - Diarrhoea [Unknown]
  - Nausea [Unknown]
  - Vomiting [Unknown]
  - Product dose omission issue [Unknown]
  - Product use issue [Unknown]
